FAERS Safety Report 5399999-9 (Version None)
Quarter: 2007Q3

REPORT INFORMATION
  Report Type: 
  Country: None (occurrence: None)
  Receive Date: 20070730
  Receipt Date: 20070718
  Transmission Date: 20080115
  Serious: Yes (Other)
  Sender: FDA-Public Use
  Company Number: NSADSS2001024812

PATIENT
  Sex: Female
  Weight: 53.52 kg

DRUGS (3)
  1. REMICADE [Suspect]
     Route: 041
     Dates: start: 20010505
  2. REMICADE [Suspect]
     Indication: CROHN'S DISEASE
     Route: 041
     Dates: start: 20010505
  3. ASACOL [Concomitant]

REACTIONS (3)
  - CROHN'S DISEASE [None]
  - LEUKOPENIA [None]
  - LUPUS-LIKE SYNDROME [None]
